FAERS Safety Report 15506715 (Version 1)
Quarter: 2018Q4

REPORT INFORMATION
  Report Type: Spontaneous
  Country: GB (occurrence: GB)
  Receive Date: 20181016
  Receipt Date: 20181016
  Transmission Date: 20190205
  Serious: Yes (Hospitalization, Other)
  Sender: FDA-Public Use
  Company Number: GB-BRISTOL-MYERS SQUIBB COMPANY-BMS-2018-094499

PATIENT
  Sex: Male

DRUGS (1)
  1. APIXABAN [Suspect]
     Active Substance: APIXABAN
     Indication: CEREBROVASCULAR ACCIDENT PROPHYLAXIS
     Dosage: 5 MG, ONE DAY (FREQUENCY UNSPECIFIED)
     Route: 048
     Dates: start: 201707, end: 201809

REACTIONS (3)
  - Gastrointestinal haemorrhage [Recovering/Resolving]
  - Melaena [Unknown]
  - Duodenal ulcer [Unknown]
